FAERS Safety Report 25791956 (Version 1)
Quarter: 2025Q3

REPORT INFORMATION
  Report Type: Spontaneous
  Country: US (occurrence: US)
  Receive Date: 20250911
  Receipt Date: 20250911
  Transmission Date: 20251021
  Serious: No
  Sender: SANOFI AVENTIS
  Company Number: US-SANOFI-02644209

PATIENT
  Age: 39 Year
  Sex: Female
  Weight: 81 kg

DRUGS (3)
  1. FABRAZYME [Suspect]
     Active Substance: AGALSIDASE BETA
     Indication: Fabry^s disease
     Dosage: 84 MG, QOW
     Route: 042
     Dates: start: 20180108, end: 20250603
  2. FABRAZYME [Suspect]
     Active Substance: AGALSIDASE BETA
     Dosage: 81 MG, QOW
     Route: 042
     Dates: start: 20250617, end: 202506
  3. FABRAZYME [Suspect]
     Active Substance: AGALSIDASE BETA
     Dosage: 80 MG, QOW
     Route: 042
     Dates: start: 20250701

REACTIONS (1)
  - Incorrect dose administered [Unknown]
